FAERS Safety Report 12366776 (Version 3)
Quarter: 2016Q3

REPORT INFORMATION
  Report Type: Spontaneous
  Country: US (occurrence: US)
  Receive Date: 20160513
  Receipt Date: 20160803
  Transmission Date: 20161109
  Serious: Yes (Hospitalization, Other)
  Sender: FDA-Public Use
  Company Number: US-BAXTER-2016BAX024331

PATIENT
  Sex: Female

DRUGS (4)
  1. DIANEAL LOW CALCIUM PERITONEAL DIALYSIS SOLUTION WITH DEXTROSE [Suspect]
     Active Substance: CALCIUM CHLORIDE\DEXTROSE\MAGNESIUM CHLORIDE\SODIUM CHLORIDE\SODIUM LACTATE
     Indication: PERITONEAL DIALYSIS
     Route: 033
  2. TRADJENTA [Suspect]
     Active Substance: LINAGLIPTIN
     Indication: PRODUCT USED FOR UNKNOWN INDICATION
     Route: 065
  3. DIANEAL LOW CALCIUM PERITONEAL DIALYSIS SOLUTION WITH DEXTROSE [Suspect]
     Active Substance: CALCIUM CHLORIDE\DEXTROSE\MAGNESIUM CHLORIDE\SODIUM CHLORIDE\SODIUM LACTATE
     Indication: PERITONEAL DIALYSIS
     Route: 033
  4. EXTRANEAL [Suspect]
     Active Substance: CALCIUM CHLORIDE\ICODEXTRIN\MAGNESIUM CHLORIDE\SODIUM CHLORIDE\SODIUM LACTATE
     Indication: PERITONEAL DIALYSIS
     Route: 033

REACTIONS (7)
  - Skin discolouration [Unknown]
  - Hypersensitivity [Unknown]
  - Local swelling [Unknown]
  - Thrombosis [Unknown]
  - Abdominal pain upper [Unknown]
  - Skin exfoliation [Unknown]
  - Urticaria [Unknown]

NARRATIVE: CASE EVENT DATE: 201604
